FAERS Safety Report 11618084 (Version 1)
Quarter: 2015Q4

REPORT INFORMATION
  Report Type: Spontaneous
  Country: SG (occurrence: SG)
  Receive Date: 20151010
  Receipt Date: 20151010
  Transmission Date: 20160304
  Serious: Yes (Other)
  Sender: FDA-Public Use
  Company Number: SG-SYMPLMED PHARMACEUTICALS-2015SYM00236

PATIENT
  Age: 66 Year
  Sex: Female

DRUGS (1)
  1. ACEON [Suspect]
     Active Substance: PERINDOPRIL ERBUMINE
     Indication: PRODUCT USED FOR UNKNOWN INDICATION
     Dosage: UNK

REACTIONS (2)
  - Hypertension [Unknown]
  - Cough [Unknown]

NARRATIVE: CASE EVENT DATE: 20150422
